FAERS Safety Report 25059813 (Version 2)
Quarter: 2025Q2

REPORT INFORMATION
  Report Type: Spontaneous
  Country: US (occurrence: US)
  Receive Date: 20250310
  Receipt Date: 20250417
  Transmission Date: 20250717
  Serious: Yes (Hospitalization)
  Sender: Unknown Manufacturer
  Company Number: US-THERATECHNOLOGIES INC.-2025-THE-IBA-000049

PATIENT

DRUGS (4)
  1. TROGARZO [Suspect]
     Active Substance: IBALIZUMAB-UIYK
     Indication: HIV infection
     Route: 042
     Dates: start: 20230419
  2. CABOTEGRAVIR [Concomitant]
     Active Substance: CABOTEGRAVIR
     Indication: Product used for unknown indication
     Route: 065
  3. LENACAPAVIR [Concomitant]
     Active Substance: LENACAPAVIR
     Indication: Product used for unknown indication
     Route: 058
  4. OXYCODONE [Concomitant]
     Active Substance: OXYCODONE
     Indication: Product used for unknown indication
     Dosage: 10 MG, EVERY 8 HOURS
     Route: 065

REACTIONS (2)
  - Pulmonary embolism [Recovering/Resolving]
  - Deep vein thrombosis [Recovering/Resolving]
